FAERS Safety Report 8622991-5 (Version None)
Quarter: 2012Q3

REPORT INFORMATION
  Report Type: 
  Country: None (occurrence: None)
  Receive Date: 20120827
  Receipt Date: 20120824
  Transmission Date: 20120928
  Serious: Yes (Other)
  Sender: FDA-Public Use
  Company Number: PHFR2012GB004451

PATIENT
  Sex: Female
  Weight: 65 kg

DRUGS (2)
  1. LISINOPRIL [Concomitant]
     Indication: HYPERTENSION
     Dosage: 10 MG, QD (DAILY)
     Route: 048
     Dates: start: 20080101
  2. LAMISIL [Suspect]
     Indication: ONYCHOMYCOSIS
     Dosage: 250 MG, QD (DAILY)
     Route: 048
     Dates: start: 20111101, end: 20120801

REACTIONS (2)
  - ENZYME INHIBITION [None]
  - DEPRESSION [None]
